FAERS Safety Report 21086907 (Version 1)
Quarter: 2022Q3

REPORT INFORMATION
  Report Type: Spontaneous
  Country: US (occurrence: US)
  Receive Date: 20220715
  Receipt Date: 20220715
  Transmission Date: 20221027
  Serious: Yes (Other)
  Sender: FDA-Public Use
  Company Number: US-CADILA HEALTHCARE LIMITED-US-ZYDUS-080273

PATIENT

DRUGS (4)
  1. MYCOPHENOLATE MOFETIL [Suspect]
     Active Substance: MYCOPHENOLATE MOFETIL
     Indication: Product used for unknown indication
     Dosage: UNK
     Route: 065
  2. CYCLOSPORINE [Suspect]
     Active Substance: CYCLOSPORINE
     Indication: Product used for unknown indication
     Dosage: UNK
     Route: 065
  3. CYSTEAMINE [MERCAPTAMINE] [Concomitant]
     Indication: Product used for unknown indication
     Dosage: UNK
     Route: 061
  4. CYSTEAMINE [MERCAPTAMINE] [Concomitant]
     Dosage: UNK
     Route: 048

REACTIONS (1)
  - Intracranial pressure increased [Recovered/Resolved]
